FAERS Safety Report 12092792 (Version 1)
Quarter: 2016Q1

REPORT INFORMATION
  Report Type: Spontaneous
  Country: US (occurrence: US)
  Receive Date: 20160219
  Receipt Date: 20160219
  Transmission Date: 20160526
  Serious: No
  Sender: FDA-Public Use
  Company Number: US-BAYER-2016-029319

PATIENT
  Age: 73 Year
  Sex: Male

DRUGS (1)
  1. ALEVE [Suspect]
     Active Substance: NAPROXEN SODIUM
     Indication: ANALGESIC THERAPY
     Dosage: 1 EVERY TIME HE WALKS, WANTS TO TAKE 2 INSTEAD OF 1
     Route: 048

REACTIONS (5)
  - Product use issue [None]
  - Device ineffective [None]
  - Osteoarthritis [Not Recovered/Not Resolved]
  - Incorrect drug administration duration [None]
  - Circumstance or information capable of leading to medication error [None]
